FAERS Safety Report 16050954 (Version 2)
Quarter: 2019Q1

REPORT INFORMATION
  Report Type: Spontaneous
  Country: US (occurrence: US)
  Receive Date: 20190308
  Receipt Date: 20190308
  Transmission Date: 20190418
  Serious: No
  Sender: FDA-Public Use
  Company Number: US-TEVA-2019-US-1011260

PATIENT
  Sex: Male

DRUGS (1)
  1. BACLOFEN TEVA [Suspect]
     Active Substance: BACLOFEN
     Indication: MUSCLE SPASMS
     Route: 065
     Dates: start: 2019

REACTIONS (3)
  - Drug effect decreased [Unknown]
  - Product substitution issue [Unknown]
  - Nocturia [Unknown]

NARRATIVE: CASE EVENT DATE: 2019
